FAERS Safety Report 10096067 (Version 2)
Quarter: 2014Q2

REPORT INFORMATION
  Report Type: Spontaneous
  Country: US (occurrence: US)
  Receive Date: 20140422
  Receipt Date: 20140509
  Transmission Date: 20141212
  Serious: Yes (Hospitalization)
  Sender: FDA-Public Use
  Company Number: US-BAYER-2014-056551

PATIENT
  Age: 20 Year
  Sex: Female
  Weight: 23.03 kg

DRUGS (18)
  1. YAZ [Suspect]
  2. PREDNISONE [Concomitant]
  3. ASACOL [Concomitant]
  4. LORTAB [Concomitant]
  5. NORETHINDRONE [Concomitant]
  6. FLAGYL [Concomitant]
  7. LOPERAMIDE [Concomitant]
  8. MERCAPTOPURINE [Concomitant]
  9. CALCIUM [Concomitant]
  10. MULTIVITAMIN [Concomitant]
  11. DIPHENHYDRAMINE [Concomitant]
  12. CYANOCOBALAMIN [Concomitant]
  13. ERRIN [Concomitant]
  14. CYCLOBENZAPRINE [Concomitant]
  15. TORADOL [Concomitant]
  16. ROBAXIN [Concomitant]
  17. OXYCODONE [Concomitant]
  18. PHENERGAN [Concomitant]

REACTIONS (2)
  - Portal vein thrombosis [None]
  - Cholelithiasis [None]
